FAERS Safety Report 8340065-8 (Version None)
Quarter: 2012Q2

REPORT INFORMATION
  Report Type: 
  Country: None (occurrence: None)
  Receive Date: 20120507
  Receipt Date: 20090409
  Transmission Date: 20120825
  Serious: No
  Sender: FDA-Public Use
  Company Number: US-TEVA-2009003668

PATIENT
  Weight: 92.162 kg

DRUGS (4)
  1. TREANDA [Suspect]
     Route: 042
     Dates: start: 20090408
  2. TREANDA [Suspect]
     Indication: CHRONIC LYMPHOCYTIC LEUKAEMIA
     Route: 042
     Dates: start: 20090310
  3. METHOTREXATE [Suspect]
     Dates: start: 20090408
  4. ALOXI [Concomitant]
     Indication: PREMEDICATION
     Dates: start: 20090310

REACTIONS (2)
  - VOMITING [None]
  - NAUSEA [None]
